FAERS Safety Report 8829157 (Version 1)
Quarter: 2012Q4

REPORT INFORMATION
  Report Type: Spontaneous
  Country: BR (occurrence: None)
  Receive Date: 20121004
  Receipt Date: 20121004
  Transmission Date: 20130627
  Serious: Yes (Other)
  Sender: FDA-Public Use
  Company Number: VAL_00880_2012

PATIENT
  Age: 31 Year
  Sex: Female

DRUGS (1)
  1. METHERGINE [Suspect]
     Indication: HAEMORRHAGE
     Dosage: 1 df 1x/8 hours, Oral
     Route: 048

REACTIONS (12)
  - Breast pain [None]
  - No therapeutic response [None]
  - Dry mouth [None]
  - Hypoaesthesia oral [None]
  - Hypoaesthesia [None]
  - Hypertension [None]
  - Headache [None]
  - Vision blurred [None]
  - Polyuria [None]
  - Abdominal pain lower [None]
  - Haemorrhage [None]
  - Disease recurrence [None]
